FAERS Safety Report 12837902 (Version 3)
Quarter: 2017Q1

REPORT INFORMATION
  Report Type: Spontaneous
  Country: US (occurrence: US)
  Receive Date: 20161012
  Receipt Date: 20170110
  Transmission Date: 20170428
  Serious: No
  Sender: FDA-Public Use
  Company Number: US-TEVA-675516USA

PATIENT
  Sex: Female

DRUGS (6)
  1. TOPIRAMATE. [Concomitant]
     Active Substance: TOPIRAMATE
  2. LORATADINE. [Concomitant]
     Active Substance: LORATADINE
  3. ZANTAC [Concomitant]
     Active Substance: RANITIDINE HYDROCHLORIDE
  4. SUMATRIPTAN. [Concomitant]
     Active Substance: SUMATRIPTAN
  5. COMPAZINE [Concomitant]
     Active Substance: PROCHLORPERAZINE MALEATE
  6. ZECUITY [Suspect]
     Active Substance: SUMATRIPTAN SUCCINATE
     Indication: MIGRAINE
     Route: 062
     Dates: start: 201606, end: 201606

REACTIONS (9)
  - Application site discolouration [Recovered/Resolved]
  - Product physical issue [Unknown]
  - Application site paraesthesia [Recovered/Resolved]
  - Product leakage [Unknown]
  - Application site pain [Recovered/Resolved]
  - Application site warmth [Recovered/Resolved]
  - Application site irritation [Recovered/Resolved]
  - Application site discomfort [Recovered/Resolved]
  - Application site erythema [Recovered/Resolved]

NARRATIVE: CASE EVENT DATE: 2016
